FAERS Safety Report 4983108-1 (Version None)
Quarter: 2006Q2

REPORT INFORMATION
  Report Type: 
  Country: None (occurrence: None)
  Receive Date: 20060426
  Receipt Date: 20060403
  Transmission Date: 20061013
  Serious: No
  Sender: FDA-Public Use
  Company Number: US-JNJFOC-20060401642

PATIENT
  Sex: Female
  Weight: 53.52 kg

DRUGS (2)
  1. DURAGESIC-100 [Suspect]
     Route: 062
  2. FLEXERIL [Concomitant]
     Route: 048

REACTIONS (1)
  - HYPERHIDROSIS [None]
